FAERS Safety Report 23134242 (Version 1)
Quarter: 2023Q4

REPORT INFORMATION
  Report Type: Spontaneous
  Country: None (occurrence: US)
  Receive Date: 20231101
  Receipt Date: 20231101
  Transmission Date: 20240109
  Serious: No
  Sender: FDA-Public Use
  Company Number: US-Yung Shin Pharmaceutical Ind.  Co., Ltd.-2147682

PATIENT
  Age: 53 Year
  Sex: Female

DRUGS (1)
  1. CEFACLOR [Suspect]
     Active Substance: CEFACLOR

REACTIONS (2)
  - Nausea [Unknown]
  - Vomiting [Unknown]
